FAERS Safety Report 5725925-6 (Version None)
Quarter: 2008Q2

REPORT INFORMATION
  Report Type: 
  Country: None (occurrence: None)
  Receive Date: 20080502
  Receipt Date: 20080421
  Transmission Date: 20081010
  Serious: Yes (Life-Threatening)
  Sender: FDA-Public Use
  Company Number: FI-JNJFOC-20080405548

PATIENT
  Sex: Male

DRUGS (5)
  1. REMICADE [Suspect]
     Indication: ANKYLOSING SPONDYLITIS
     Route: 042
  2. METHOTREXATE [Concomitant]
     Route: 048
  3. FOLIC ACID [Concomitant]
     Route: 048
  4. SALAZOPYRIN EN [Concomitant]
     Route: 048
  5. ARCOXIA [Concomitant]
     Dosage: 1 TABLET DAILY IF NEEDED
     Route: 048

REACTIONS (1)
  - METASTATIC MALIGNANT MELANOMA [None]
